FAERS Safety Report 6330122-X (Version None)
Quarter: 2009Q3

REPORT INFORMATION
  Report Type: 
  Country: None (occurrence: None)
  Receive Date: 20090827
  Receipt Date: 20090818
  Transmission Date: 20100115
  Serious: Yes (Death, Hospitalization)
  Sender: FDA-Public Use
  Company Number: US-BIOGENIDEC-174195

PATIENT
  Age: 41 Year
  Sex: Male
  Weight: 86 kg

DRUGS (3)
  1. AVONEX [Suspect]
     Indication: MULTIPLE SCLEROSIS
     Route: 030
     Dates: start: 20021216
  2. DIOVAN [Concomitant]
     Indication: HYPERTENSION
     Dates: end: 20021221
  3. CELEXA [Concomitant]
     Indication: DEPRESSION
     Dates: start: 20020801, end: 20021221

REACTIONS (1)
  - PNEUMONIA ASPIRATION [None]
